FAERS Safety Report 25101811 (Version 1)
Quarter: 2025Q1

REPORT INFORMATION
  Report Type: Spontaneous
  Country: US (occurrence: US)
  Receive Date: 20250320
  Receipt Date: 20250320
  Transmission Date: 20250409
  Serious: Yes (Hospitalization)
  Sender: ABBVIE
  Company Number: US-ABBVIE-6179214

PATIENT
  Age: 18 Year
  Sex: Male

DRUGS (1)
  1. RINVOQ [Suspect]
     Active Substance: UPADACITINIB
     Indication: Dermatitis atopic
     Route: 048
     Dates: start: 2022

REACTIONS (3)
  - Impetigo [Recovered/Resolved]
  - Dermatitis atopic [Recovered/Resolved]
  - Seborrhoeic dermatitis [Recovered/Resolved]

NARRATIVE: CASE EVENT DATE: 20250201
